FAERS Safety Report 12502919 (Version 1)
Quarter: 2016Q2

REPORT INFORMATION
  Report Type: Report from Study
  Country: US (occurrence: US)
  Receive Date: 20160628
  Receipt Date: 20160628
  Transmission Date: 20160815
  Serious: No
  Sender: FDA-Public Use
  Company Number: US-AMGEN-USASL2016081671

PATIENT
  Age: 51 Year
  Sex: Female

DRUGS (1)
  1. ENBREL [Suspect]
     Active Substance: ETANERCEPT
     Indication: RHEUMATOID ARTHRITIS
     Dosage: UNK, QWKQWK
     Route: 065

REACTIONS (5)
  - Feeling abnormal [Unknown]
  - Drug effect delayed [Unknown]
  - Mobility decreased [Unknown]
  - Pain [Unknown]
  - Single functional kidney [Unknown]
